FAERS Safety Report 4587749-5 (Version None)
Quarter: 2005Q1

REPORT INFORMATION
  Report Type: 
  Country: None (occurrence: None)
  Receive Date: 20050218
  Receipt Date: 20050209
  Transmission Date: 20050727
  Serious: Yes (Other)
  Sender: FDA-Public Use
  Company Number: GBWYE421314FEB05

PATIENT
  Sex: Male

DRUGS (7)
  1. ENBREL [Suspect]
     Indication: ANKYLOSING SPONDYLITIS
     Route: 058
     Dates: start: 20040401
  2. ENBREL [Suspect]
  3. ACETYLSALICYLIC ACID SRT [Concomitant]
  4. ANTIHYPERTENSIVE MEDICATION NOS [Concomitant]
  5. METHOTREXATE [Concomitant]
     Indication: ANKYLOSING SPONDYLITIS
  6. SULFASALAZINE [Concomitant]
     Indication: ANKYLOSING SPONDYLITIS
  7. CARDIAC MEDICATION NOS [Concomitant]

REACTIONS (3)
  - CARDIAC DISORDER [None]
  - CARDIAC PACEMAKER MALFUNCTION [None]
  - OEDEMA PERIPHERAL [None]
